FAERS Safety Report 7298142-9 (Version None)
Quarter: 2011Q1

REPORT INFORMATION
  Report Type: 
  Country: None (occurrence: None)
  Receive Date: 20110214
  Receipt Date: 20110214
  Transmission Date: 20110831
  Serious: No
  Sender: FDA-Public Use
  Company Number: None

PATIENT
  Age: 63 Year
  Sex: Female

DRUGS (1)
  1. DORZOLAMIDE HYDROCHLORIDE AND TIMOLOL MALEATE [Suspect]
     Indication: GLAUCOMA
     Dosage: INSTILL 1 DROP IN EACH EYE TWICE A DAY

REACTIONS (3)
  - DISCOMFORT [None]
  - PRODUCT DEPOSIT [None]
  - PRODUCT QUALITY ISSUE [None]
